FAERS Safety Report 25177114 (Version 1)
Quarter: 2025Q2

REPORT INFORMATION
  Report Type: Spontaneous
  Country: CZ (occurrence: CZ)
  Receive Date: 20250409
  Receipt Date: 20250409
  Transmission Date: 20250716
  Serious: Yes (Other)
  Sender: SANOFI AVENTIS
  Company Number: None

PATIENT
  Age: 41 Year
  Sex: Male
  Weight: 115 kg

DRUGS (3)
  1. REZUROCK [Suspect]
     Active Substance: BELUMOSUDIL
     Indication: Chronic graft versus host disease
     Dosage: 200 MG, Q12H; 1-0-1
     Route: 048
     Dates: start: 20240702, end: 20250311
  2. RUXOLITINIB [Concomitant]
     Active Substance: RUXOLITINIB
     Indication: Chronic graft versus host disease
     Dosage: 5 MG, QD; CURRENTLY 1-0-0, LONG-TERM MEDICATION (INITIALLY 2-0-2, GRADUAL REDUCTION)
     Route: 048
     Dates: start: 20220623
  3. CYCLOSPORINE [Concomitant]
     Active Substance: CYCLOSPORINE
     Indication: Chronic graft versus host disease
     Dosage: 50 MG, QD; 1-0-0, LONG-TERM MEDICATION
     Route: 048
     Dates: start: 20190510

REACTIONS (2)
  - Skin squamous cell carcinoma recurrent [Recovered/Resolved]
  - Inappropriate schedule of product administration [Unknown]

NARRATIVE: CASE EVENT DATE: 20240702
